FAERS Safety Report 16280967 (Version 1)
Quarter: 2019Q2

REPORT INFORMATION
  Report Type: Spontaneous
  Country: BR (occurrence: BR)
  Receive Date: 20190507
  Receipt Date: 20190507
  Transmission Date: 20190711
  Serious: Yes (Life-Threatening)
  Sender: FDA-Public Use
  Company Number: BR-GUERBET-BR-20190156

PATIENT
  Age: 51 Year
  Sex: Female

DRUGS (1)
  1. OPTIRAY 320 [Suspect]
     Active Substance: IOVERSOL
     Indication: PRODUCT USED FOR UNKNOWN INDICATION
     Route: 042
     Dates: start: 20190418, end: 20190418

REACTIONS (5)
  - Rash [Unknown]
  - Tachycardia [Unknown]
  - Blood lactic acid increased [Unknown]
  - Tachypnoea [Unknown]
  - Lividity [Unknown]

NARRATIVE: CASE EVENT DATE: 20190418
